FAERS Safety Report 5171617-4 (Version None)
Quarter: 2006Q4

REPORT INFORMATION
  Report Type: 
  Country: None (occurrence: None)
  Receive Date: 20061205
  Receipt Date: 20061121
  Transmission Date: 20070319
  Serious: Yes (Hospitalization)
  Sender: FDA-Public Use
  Company Number: 2006144021

PATIENT
  Age: 79 Year
  Sex: Male
  Weight: 81.5 kg

DRUGS (11)
  1. FELDENE [Suspect]
     Indication: OSTEOARTHRITIS
     Dosage: ORAL
     Route: 048
     Dates: start: 19900101
  2. SU-011, 248 (SUNITINIB MALATE) [Suspect]
     Indication: RENAL CELL CARCINOMA STAGE UNSPECIFIED
     Dosage: 50 MG (50 MG, 1 IN 1 D), ORAL
     Route: 048
     Dates: start: 20060920
  3. WARFARIN SODIUM [Suspect]
     Indication: AORTIC VALVE REPLACEMENT
     Dosage: ORAL
     Route: 048
     Dates: start: 20060628
  4. ATENOLOL [Concomitant]
  5. TOLTERODINE TARTRATE [Concomitant]
  6. TAMSULOSIN HCL [Concomitant]
  7. ALUMINUM HYDROXIDE AND MAGNESIUM TRISILICATE [Concomitant]
  8. LORTAB [Concomitant]
  9. LEUPROLIDE ACETAE (LEUPRORELIN ACETATE) [Concomitant]
  10. CELECOXIB (CELECOXIB) [Concomitant]
  11. TERAZOSIN HCL [Concomitant]

REACTIONS (5)
  - ANAL FISSURE [None]
  - DYSGEUSIA [None]
  - FATIGUE [None]
  - HAEMATOCRIT DECREASED [None]
  - INTERNATIONAL NORMALISED RATIO ABNORMAL [None]
